FAERS Safety Report 6984534-1 (Version None)
Quarter: 2010Q3

REPORT INFORMATION
  Report Type: 
  Country: None (occurrence: None)
  Receive Date: 20100913
  Receipt Date: 20100908
  Transmission Date: 20110219
  Serious: Yes (Hospitalization)
  Sender: FDA-Public Use
  Company Number: 1000014907

PATIENT
  Age: 70 Year
  Sex: Female

DRUGS (8)
  1. THYROID TAB [Suspect]
     Indication: HYPOTHYROIDISM
     Dosage: 300 MG (300 MG, 1 IN 1 D), ORAL
     Route: 048
     Dates: start: 20100101, end: 20100703
  2. COZAAR [Concomitant]
  3. HYDROCHLOROTHIAZIDE [Concomitant]
  4. CARDURA [Concomitant]
  5. ASPIRIN [Concomitant]
  6. HUMULIN N [Concomitant]
  7. HUMULIN R [Concomitant]
  8. SUPPLEMENTS [Concomitant]

REACTIONS (4)
  - CONFUSIONAL STATE [None]
  - DRUG INEFFECTIVE [None]
  - HYPOTHYROIDISM [None]
  - PAIN IN EXTREMITY [None]
